FAERS Safety Report 7122342-1 (Version None)
Quarter: 2010Q4

REPORT INFORMATION
  Report Type: 
  Country: None (occurrence: None)
  Receive Date: 20101124
  Receipt Date: 20101115
  Transmission Date: 20110411
  Serious: Yes (Hospitalization)
  Sender: FDA-Public Use
  Company Number: PHHO2010SG17291

PATIENT
  Sex: Male

DRUGS (1)
  1. ACZ885 ACZ+ [Suspect]

REACTIONS (4)
  - ARTHRITIS [None]
  - METAPNEUMOVIRUS INFECTION [None]
  - PYREXIA [None]
  - RASH [None]
